FAERS Safety Report 20705086 (Version 2)
Quarter: 2025Q2

REPORT INFORMATION
  Report Type: Report from Study
  Country: US (occurrence: US)
  Receive Date: 20220413
  Receipt Date: 20250630
  Transmission Date: 20250716
  Serious: Yes (Hospitalization, Other)
  Sender: TAKEDA
  Company Number: US-TAKEDA-US201919364

PATIENT
  Age: 73 Year
  Sex: Male

DRUGS (4)
  1. TEDUGLUTIDE [Suspect]
     Active Substance: TEDUGLUTIDE
     Indication: Short-bowel syndrome
     Dosage: 3.8 MILLIGRAM, QD
     Dates: start: 20171113
  2. TEDUGLUTIDE [Suspect]
     Active Substance: TEDUGLUTIDE
     Dosage: 3.97 MILLIGRAM, QOD
     Dates: start: 20171205
  3. TEDUGLUTIDE [Suspect]
     Active Substance: TEDUGLUTIDE
  4. TEDUGLUTIDE [Suspect]
     Active Substance: TEDUGLUTIDE

REACTIONS (8)
  - Illness [Unknown]
  - Obstruction [Unknown]
  - Respiratory disorder [Unknown]
  - Dehydration [Unknown]
  - Sepsis [Unknown]
  - Inappropriate schedule of product administration [Unknown]
  - Overgrowth bacterial [Unknown]
  - Gastrointestinal stoma output increased [Unknown]

NARRATIVE: CASE EVENT DATE: 20250625
